FAERS Safety Report 24022104 (Version 1)
Quarter: 2024Q2

REPORT INFORMATION
  Report Type: Spontaneous
  Country: TH (occurrence: TH)
  Receive Date: 20240627
  Receipt Date: 20240627
  Transmission Date: 20240715
  Serious: No
  Sender: FDA-Public Use
  Company Number: TH-ROCHE-3523077

PATIENT
  Age: 58 Year
  Sex: Male

DRUGS (1)
  1. FARICIMAB [Suspect]
     Active Substance: FARICIMAB
     Indication: Polypoidal choroidal vasculopathy
     Route: 050

REACTIONS (1)
  - Macular hole [Unknown]
